FAERS Safety Report 14964074 (Version 1)
Quarter: 2018Q2

REPORT INFORMATION
  Report Type: Report from Study
  Country: US (occurrence: US)
  Receive Date: 20180601
  Receipt Date: 20180601
  Transmission Date: 20180711
  Serious: Yes (Other)
  Sender: FDA-Public Use
  Company Number: PHEH2018US021055

PATIENT
  Age: 50 Year
  Sex: Female

DRUGS (1)
  1. COSENTYX [Suspect]
     Active Substance: SECUKINUMAB
     Indication: PSORIATIC ARTHROPATHY
     Dosage: 150 MG, QMO
     Route: 058
     Dates: start: 20180306

REACTIONS (7)
  - Blister [Unknown]
  - Psoriasis [Unknown]
  - Gait disturbance [Unknown]
  - Vitamin D decreased [Unknown]
  - Sinusitis [Recovering/Resolving]
  - Drug ineffective [Not Recovered/Not Resolved]
  - Pain in extremity [Unknown]

NARRATIVE: CASE EVENT DATE: 20180306
